FAERS Safety Report 23245741 (Version 1)
Quarter: 2023Q4

REPORT INFORMATION
  Report Type: Spontaneous
  Country: FR (occurrence: FR)
  Receive Date: 20231130
  Receipt Date: 20231130
  Transmission Date: 20240110
  Serious: Yes (Hospitalization, Other)
  Sender: FDA-Public Use
  Company Number: None

PATIENT
  Age: 66 Year
  Sex: Male
  Weight: 92 kg

DRUGS (7)
  1. CALCIUM [Suspect]
     Active Substance: CALCIUM
     Indication: Colon cancer
     Dosage: UNK UNK, QD
     Route: 042
     Dates: start: 20231011, end: 20231011
  2. OXALIPLATIN [Suspect]
     Active Substance: OXALIPLATIN
     Indication: Colon cancer
     Dosage: UNK UNK, QD
     Route: 042
     Dates: start: 20231011, end: 20231011
  3. APREPITANT [Suspect]
     Active Substance: APREPITANT
     Indication: Nausea
     Dosage: 125 MG ON D1
     Route: 048
     Dates: start: 20231011, end: 20231011
  4. APREPITANT [Suspect]
     Active Substance: APREPITANT
     Dosage: 80 MG ON D2 AND D3
     Route: 048
     Dates: start: 20231012, end: 20231013
  5. FLUOROURACIL [Suspect]
     Active Substance: FLUOROURACIL
     Indication: Colon cancer
     Dosage: UNK UNK, QD
     Route: 042
     Dates: start: 20231011, end: 20231011
  6. ACETAMINOPHEN [Concomitant]
     Active Substance: ACETAMINOPHEN
     Indication: Product used for unknown indication
  7. PHLOROGLUCINOL [Concomitant]
     Active Substance: PHLOROGLUCINOL
     Indication: Product used for unknown indication

REACTIONS (1)
  - Pancreatitis acute [Not Recovered/Not Resolved]

NARRATIVE: CASE EVENT DATE: 20231015
